FAERS Safety Report 18927923 (Version 1)
Quarter: 2021Q1

REPORT INFORMATION
  Report Type: Spontaneous
  Country: DE (occurrence: DE)
  Receive Date: 20210223
  Receipt Date: 20210223
  Transmission Date: 20210420
  Serious: Yes (Other)
  Sender: FDA-Public Use
  Company Number: DE-MACLEODS PHARMA UK LTD-MAC2021030238

PATIENT

DRUGS (1)
  1. OLMESARTAN 40MG [Suspect]
     Active Substance: OLMESARTAN
     Indication: ACUTE MYOCARDIAL INFARCTION
     Dosage: 40 MILLIGRAM
     Route: 065

REACTIONS (1)
  - Colitis microscopic [Recovering/Resolving]
